FAERS Safety Report 6681941-1 (Version None)
Quarter: 2010Q2

REPORT INFORMATION
  Report Type: 
  Country: None (occurrence: None)
  Receive Date: 20100409
  Receipt Date: 20100401
  Transmission Date: 20101027
  Serious: Yes (Congenital Anomaly, Other)
  Sender: FDA-Public Use
  Company Number: IDA-00341

PATIENT

DRUGS (1)
  1. PROPRANOLOL [Suspect]
     Indication: PORTAL HYPERTENSION
     Dosage: TRANSPLACENTAL
     Route: 064

REACTIONS (4)
  - BRADYCARDIA FOETAL [None]
  - FOETAL GROWTH RETARDATION [None]
  - MATERNAL DRUGS AFFECTING FOETUS [None]
  - PREMATURE BABY [None]
